FAERS Safety Report 19067827 (Version 1)
Quarter: 2021Q1

REPORT INFORMATION
  Report Type: Spontaneous
  Country: DE (occurrence: DE)
  Receive Date: 20210329
  Receipt Date: 20210329
  Transmission Date: 20210420
  Serious: Yes (Death, Other)
  Sender: FDA-Public Use
  Company Number: DE-PFIZER INC-2021309645

PATIENT

DRUGS (2)
  1. CYTOTEC [Suspect]
     Active Substance: MISOPROSTOL
     Indication: LABOUR INDUCTION
     Dosage: FREQ:{TOTAL};25?50?50 ?G
     Route: 064
     Dates: start: 20201220, end: 20201221
  2. OXYTOCIN. [Suspect]
     Active Substance: OXYTOCIN
     Indication: LABOUR INDUCTION
     Dosage: 250 ML
     Route: 064
     Dates: start: 20201221, end: 20201221

REACTIONS (4)
  - Neonatal respiratory arrest [Fatal]
  - Neonatal respiratory distress [Fatal]
  - Foetal exposure during delivery [Fatal]
  - Neonatal tachycardia [Fatal]

NARRATIVE: CASE EVENT DATE: 20201220
